FAERS Safety Report 13898969 (Version 1)
Quarter: 2017Q3

REPORT INFORMATION
  Report Type: Spontaneous
  Country: US (occurrence: US)
  Receive Date: 20170823
  Receipt Date: 20170823
  Transmission Date: 20171127
  Serious: No
  Sender: FDA-Public Use
  Company Number: None

PATIENT
  Age: 55 Year
  Sex: Male
  Weight: 90.27 kg

DRUGS (12)
  1. MULTI-VITAMIN [Concomitant]
     Active Substance: .ALPHA.-TOCOPHEROL ACETATE, DL-\ASCORBIC ACID\CYANOCOBALAMIN\FLUORIDE ION\FOLIC ACID\NIACIN\PYRIDOXINE\RIBOFLAVIN\THIAMINE\VITAMIN A\VITAMIN D
  2. NAPROXEN SODIUM. [Concomitant]
     Active Substance: NAPROXEN SODIUM
  3. TRULICITY [Suspect]
     Active Substance: DULAGLUTIDE
     Indication: DIABETES MELLITUS
     Dosage: ?          QUANTITY:1 INJECTION(S);OTHER FREQUENCY:1/WEEK;OTHER ROUTE:INJECTED INTO STOMACH AREA?
     Dates: start: 20170819, end: 20170819
  4. METFORMIN [Concomitant]
     Active Substance: METFORMIN HYDROCHLORIDE
  5. AMLODIPINE BESYLATE. [Concomitant]
     Active Substance: AMLODIPINE BESYLATE
  6. B MULTI-VITAMIN [Concomitant]
  7. FISH OIL [Concomitant]
     Active Substance: FISH OIL
  8. DYPHENHYDRAMINE HCL [Concomitant]
  9. LOSARTAN POTASSIUM. [Concomitant]
     Active Substance: LOSARTAN POTASSIUM
  10. ATORVASTATIN [Concomitant]
     Active Substance: ATORVASTATIN
  11. GLIPIZIDE. [Concomitant]
     Active Substance: GLIPIZIDE
  12. PIOGLITAZONE HCL [Concomitant]
     Active Substance: PIOGLITAZONE

REACTIONS (7)
  - Nausea [None]
  - Diarrhoea [None]
  - Hyperchlorhydria [None]
  - Vomiting [None]
  - Weight decreased [None]
  - Retching [None]
  - Dyspepsia [None]

NARRATIVE: CASE EVENT DATE: 20170819
